FAERS Safety Report 8310066-4 (Version None)
Quarter: 2012Q2

REPORT INFORMATION
  Report Type: 
  Country: None (occurrence: None)
  Receive Date: 20120425
  Receipt Date: 20120418
  Transmission Date: 20120825
  Serious: Yes (Hospitalization)
  Sender: FDA-Public Use
  Company Number: SE-SANOFI-AVENTIS-2012SA027172

PATIENT
  Age: 77 Year
  Sex: Female

DRUGS (8)
  1. PRIMPERAN TAB [Concomitant]
  2. FELODIPINE [Concomitant]
  3. PROPAVAN [Concomitant]
  4. PREDNISOLONE [Concomitant]
  5. IMOVANE [Concomitant]
  6. ARAVA [Suspect]
     Indication: RHEUMATOID ARTHRITIS
     Route: 048
     Dates: start: 20111109, end: 20120223
  7. ALVEDON [Concomitant]
  8. DIMOR [Concomitant]

REACTIONS (3)
  - TRANSAMINASES INCREASED [None]
  - BLOOD ALKALINE PHOSPHATASE INCREASED [None]
  - BLOOD BILIRUBIN INCREASED [None]
